FAERS Safety Report 5842595-7 (Version None)
Quarter: 2008Q3

REPORT INFORMATION
  Report Type: 
  Country: None (occurrence: None)
  Receive Date: 20080812
  Receipt Date: 20080804
  Transmission Date: 20090109
  Serious: Yes (Death)
  Sender: FDA-Public Use
  Company Number: NZ-MERCK-0808NZL00002

PATIENT
  Age: 47 Year
  Sex: Male

DRUGS (5)
  1. ZOCOR [Suspect]
     Indication: HYPERCHOLESTEROLAEMIA
     Route: 048
     Dates: start: 20080218, end: 20080309
  2. POTASSIUM CHLORIDE [Concomitant]
     Route: 048
     Dates: end: 20080301
  3. QUINAPRIL HYDROCHLORIDE [Concomitant]
     Indication: ESSENTIAL HYPERTENSION
     Route: 048
     Dates: end: 20080301
  4. ALLOPURINOL [Concomitant]
     Indication: GOUT
     Route: 048
     Dates: end: 20080301
  5. ACETAMINOPHEN AND CODEINE PHOSPHATE [Concomitant]
     Route: 048
     Dates: end: 20080301

REACTIONS (5)
  - BLOOD CREATINE PHOSPHOKINASE INCREASED [None]
  - CARDIAC ARREST [None]
  - HEPATIC FUNCTION ABNORMAL [None]
  - HYPERKALAEMIA [None]
  - RHABDOMYOLYSIS [None]
